FAERS Safety Report 8990764 (Version 1)
Quarter: 2012Q4

REPORT INFORMATION
  Report Type: Spontaneous
  Country: US (occurrence: None)
  Receive Date: 20121226
  Receipt Date: 20121226
  Transmission Date: 20130627
  Serious: Yes (Life-Threatening)
  Sender: FDA-Public Use
  Company Number: None

PATIENT
  Sex: Male
  Weight: 125 kg

DRUGS (3)
  1. RIBASPHERE [Suspect]
     Dosage: 180 MG / 200 MG WEEKLY / 600 MG TID SQ / PO
     Dates: start: 20121121, end: 20121121
  2. PEGASYS [Suspect]
     Dosage: 180 mg / 200 mg weekly / 600 mg TID SQ / PO
     Dates: start: 20121121, end: 20121121
  3. INCIVEK [Suspect]
     Indication: HEPATITIS C
     Route: 048
     Dates: start: 20121121

REACTIONS (4)
  - Blister [None]
  - Visual impairment [None]
  - Skin fissures [None]
  - Blood urine present [None]
